FAERS Safety Report 8148649-7 (Version None)
Quarter: 2012Q1

REPORT INFORMATION
  Report Type: 
  Country: None (occurrence: None)
  Receive Date: 20120218
  Receipt Date: 20110627
  Transmission Date: 20120608
  Serious: No
  Sender: FDA-Public Use
  Company Number: US-ALLERGAN-1108700US

PATIENT
  Sex: Female

DRUGS (1)
  1. BOTOX COSMETIC [Suspect]
     Indication: SKIN WRINKLING
     Dosage: UNK
     Dates: start: 20110627, end: 20110627

REACTIONS (4)
  - NAUSEA [None]
  - DIZZINESS [None]
  - HYPERSENSITIVITY [None]
  - DYSPNOEA [None]
